FAERS Safety Report 24253892 (Version 1)
Quarter: 2024Q3

REPORT INFORMATION
  Report Type: Spontaneous
  Country: US (occurrence: US)
  Receive Date: 20240827
  Receipt Date: 20240827
  Transmission Date: 20241017
  Serious: No
  Sender: BAYER
  Company Number: US-BAYER-2024A122632

PATIENT
  Age: 75 Year
  Sex: Male

DRUGS (5)
  1. CLARITIN LIQUI-GELS [Suspect]
     Active Substance: LORATADINE
     Indication: Sneezing
     Dosage: 1 DF WITH WATER
     Route: 048
     Dates: start: 20240806, end: 20240825
  2. CLARITIN LIQUI-GELS [Suspect]
     Active Substance: LORATADINE
     Indication: Lacrimation increased
  3. CLARITIN LIQUI-GELS [Suspect]
     Active Substance: LORATADINE
     Indication: Pruritus
  4. CLARITIN LIQUI-GELS [Suspect]
     Active Substance: LORATADINE
     Indication: Hypersensitivity
  5. CLARITIN LIQUI-GELS [Suspect]
     Active Substance: LORATADINE
     Indication: Nasopharyngitis

REACTIONS (1)
  - Drug ineffective [Recovered/Resolved]

NARRATIVE: CASE EVENT DATE: 20240806
